FAERS Safety Report 20908217 (Version 10)
Quarter: 2023Q4

REPORT INFORMATION
  Report Type: Report from Study
  Country: KR (occurrence: KR)
  Receive Date: 20220602
  Receipt Date: 20231223
  Transmission Date: 20240110
  Serious: Yes (Hospitalization, Other)
  Sender: FDA-Public Use
  Company Number: KR-JNJFOC-20220555776

PATIENT
  Age: 43 Year
  Sex: Female

DRUGS (5)
  1. MACITENTAN [Suspect]
     Active Substance: MACITENTAN
     Indication: Pulmonary arterial hypertension
     Route: 048
  2. VENTAVIS [Suspect]
     Active Substance: ILOPROST
     Indication: Product used for unknown indication
     Route: 055
  3. REMODULIN [Suspect]
     Active Substance: TREPROSTINIL
     Indication: Product used for unknown indication
     Route: 065
     Dates: start: 2022
  4. FOLIC ACID [Concomitant]
     Active Substance: FOLIC ACID
  5. SILDENAFIL CITRATE [Concomitant]
     Active Substance: SILDENAFIL CITRATE

REACTIONS (27)
  - Generalised oedema [Recovering/Resolving]
  - Anaemia [Unknown]
  - Cardiomegaly [Unknown]
  - Pharyngeal haemorrhage [Unknown]
  - Hospitalisation [Unknown]
  - Peripheral swelling [Recovering/Resolving]
  - Dyspnoea exertional [Recovered/Resolved]
  - Insomnia [Recovered/Resolved]
  - Decreased appetite [Recovered/Resolved]
  - Dizziness [Recovering/Resolving]
  - Heavy menstrual bleeding [Unknown]
  - Uterine leiomyoma [Unknown]
  - Product dose omission issue [Unknown]
  - Dysmenorrhoea [Not Recovered/Not Resolved]
  - Urine flow decreased [Recovered/Resolved]
  - Temperature intolerance [Unknown]
  - Hypokinesia [Unknown]
  - Fatigue [Not Recovered/Not Resolved]
  - Erythema [Unknown]
  - Pain in extremity [Not Recovered/Not Resolved]
  - Arthralgia [Recovered/Resolved]
  - Chest discomfort [Recovering/Resolving]
  - Dyspepsia [Unknown]
  - Arthritis [Recovering/Resolving]
  - Injection site reaction [Unknown]
  - COVID-19 [Unknown]
  - Nasal congestion [Unknown]

NARRATIVE: CASE EVENT DATE: 20220201
